FAERS Safety Report 8483517-2 (Version None)
Quarter: 2012Q3

REPORT INFORMATION
  Report Type: 
  Country: None (occurrence: None)
  Receive Date: 20120702
  Receipt Date: 20120627
  Transmission Date: 20120928
  Serious: Yes (Hospitalization, Disabling, Other)
  Sender: FDA-Public Use
  Company Number: US-MERCK-1203USA03293

PATIENT
  Age: 60 Year
  Sex: Female

DRUGS (4)
  1. FOSAMAX [Suspect]
     Indication: OSTEOPOROSIS
     Route: 048
     Dates: start: 20020101
  2. FOSAMAX [Suspect]
     Indication: OSTEOPENIA
     Route: 048
     Dates: start: 20020101
  3. VITAMIN D (UNSPECIFIED) [Concomitant]
     Route: 048
     Dates: start: 19920101
  4. CALCIUM (UNSPECIFIED) [Concomitant]
     Route: 048
     Dates: start: 19920101

REACTIONS (9)
  - HIP FRACTURE [None]
  - DIABETES MELLITUS [None]
  - IMPAIRED HEALING [None]
  - FOOT FRACTURE [None]
  - GASTROOESOPHAGEAL REFLUX DISEASE [None]
  - LOW TURNOVER OSTEOPATHY [None]
  - OSTEOPOROSIS [None]
  - FEMUR FRACTURE [None]
  - STRESS FRACTURE [None]
